FAERS Safety Report 8102753-8 (Version None)
Quarter: 2012Q1

REPORT INFORMATION
  Report Type: 
  Country: None (occurrence: None)
  Receive Date: 20120201
  Receipt Date: 20120119
  Transmission Date: 20120608
  Serious: Yes (Hospitalization)
  Sender: FDA-Public Use
  Company Number: JP-UCBSA-050071

PATIENT
  Age: 40 Year
  Sex: Male

DRUGS (4)
  1. KEPPRA [Suspect]
     Indication: EPILEPSY
     Route: 048
  2. PHENYTOIN SODIUM CAP [Concomitant]
     Dosage: DOSE GRADUALLY DECREASED
  3. GABAPENTIN [Concomitant]
     Dosage: UNKNOWN DOSE
     Route: 048
  4. PHENYTOIN SODIUM CAP [Concomitant]
     Dosage: UNKNOWN DOSE

REACTIONS (1)
  - PANCYTOPENIA [None]
